FAERS Safety Report 7497141-1 (Version None)
Quarter: 2011Q2

REPORT INFORMATION
  Report Type: 
  Country: None (occurrence: None)
  Receive Date: 20110523
  Receipt Date: 20110517
  Transmission Date: 20111010
  Serious: Yes (Other)
  Sender: FDA-Public Use
  Company Number: JP-B.I. PHARMACEUTICALS,INC./RIDGEFIELD-2011-BP-13403NB

PATIENT
  Age: 85 Year
  Sex: Male

DRUGS (3)
  1. FRANDOL S [Concomitant]
     Dosage: 1 ANZ
     Route: 062
     Dates: start: 20090123
  2. PRADAXA [Suspect]
     Indication: ATRIAL FIBRILLATION
     Dosage: 220 MG
     Route: 048
     Dates: start: 20110428
  3. PRADAXA [Suspect]
     Dosage: 220 MG
     Route: 048
     Dates: start: 20110517

REACTIONS (2)
  - LARGE INTESTINE CARCINOMA [None]
  - HAEMATOCHEZIA [None]
